FAERS Safety Report 4467638-7 (Version None)
Quarter: 2004Q4

REPORT INFORMATION
  Report Type: 
  Country: None (occurrence: None)
  Receive Date: 20041004
  Receipt Date: 20041004
  Transmission Date: 20050328
  Serious: Yes (Hospitalization)
  Sender: FDA-Public Use
  Company Number: None

PATIENT
  Age: 44 Year
  Sex: Male

DRUGS (2)
  1. SEROQUEL [Suspect]
     Indication: ANXIETY
     Dosage: 25MG  AM /RECENT
  2. SEROQUEL [Suspect]
     Indication: ANXIETY
     Dosage: 100MG PM/  RECENT

REACTIONS (1)
  - SYNCOPE VASOVAGAL [None]
